FAERS Safety Report 17323613 (Version 7)
Quarter: 2025Q1

REPORT INFORMATION
  Report Type: Report from Study
  Country: GB (occurrence: GB)
  Receive Date: 20200127
  Receipt Date: 20250303
  Transmission Date: 20250408
  Serious: Yes (Hospitalization)
  Sender: ROCHE
  Company Number: GB-ROCHE-2528410

PATIENT
  Sex: Female

DRUGS (15)
  1. TOCILIZUMAB [Suspect]
     Active Substance: TOCILIZUMAB
     Indication: Rheumatoid arthritis
     Route: 058
     Dates: start: 2019
  2. TOCILIZUMAB [Suspect]
     Active Substance: TOCILIZUMAB
     Route: 058
     Dates: start: 201906
  3. TOCILIZUMAB [Suspect]
     Active Substance: TOCILIZUMAB
     Route: 058
     Dates: start: 20190625
  4. TOCILIZUMAB [Suspect]
     Active Substance: TOCILIZUMAB
     Route: 058
  5. TOCILIZUMAB [Suspect]
     Active Substance: TOCILIZUMAB
     Route: 058
  6. THYROXINE [Concomitant]
     Active Substance: LEVOTHYROXINE
  7. ACETAMINOPHEN [Concomitant]
     Active Substance: ACETAMINOPHEN
  8. FOLIC ACID [Concomitant]
     Active Substance: FOLIC ACID
  9. OMEPRAZOLE [Concomitant]
     Active Substance: OMEPRAZOLE
  10. RAMIPRIL [Concomitant]
     Active Substance: RAMIPRIL
  11. PRIMROSE OIL [Concomitant]
  12. CHAMOMILE [Concomitant]
     Active Substance: CHAMOMILE
  13. TRAMADOL [Concomitant]
     Active Substance: TRAMADOL
  14. IBUPROFEN [Concomitant]
     Active Substance: IBUPROFEN
  15. PREGABALIN [Concomitant]
     Active Substance: PREGABALIN

REACTIONS (5)
  - Feeling abnormal [Unknown]
  - Blister [Unknown]
  - Localised infection [Unknown]
  - Condition aggravated [Unknown]
  - Sepsis [Unknown]
